FAERS Safety Report 5936112-0 (Version None)
Quarter: 2008Q4

REPORT INFORMATION
  Report Type: 
  Country: None (occurrence: None)
  Receive Date: 20081030
  Receipt Date: 20081020
  Transmission Date: 20090506
  Serious: Yes (Hospitalization)
  Sender: FDA-Public Use
  Company Number: JP-PFIZER INC-2008084785

PATIENT
  Age: 75 Year
  Sex: Female

DRUGS (3)
  1. ALDACTONE [Suspect]
  2. RENIN-ANGIOTENSIN SYSTEM, AGENTS ACTING ON [Suspect]
     Route: 048
  3. DRUG, UNSPECIFIED [Concomitant]
     Route: 048

REACTIONS (1)
  - DIABETES INSIPIDUS [None]
